FAERS Safety Report 16885190 (Version 2)
Quarter: 2019Q4

REPORT INFORMATION
  Report Type: Spontaneous
  Country: US (occurrence: US)
  Receive Date: 20191004
  Receipt Date: 20191218
  Transmission Date: 20200122
  Serious: Yes (Other)
  Sender: FDA-Public Use
  Company Number: US-ENDO PHARMACEUTICALS INC-2019-105152

PATIENT
  Age: 53 Year
  Sex: Male
  Weight: 83.9 kg

DRUGS (13)
  1. XIAFLEX [Suspect]
     Active Substance: COLLAGENASE CLOSTRIDIUM HISTOLYTICUM
     Dosage: UNK UNKNOWN, CYCLE TWO, INJECTION ONE
     Route: 026
     Dates: start: 2018
  2. XIAFLEX [Suspect]
     Active Substance: COLLAGENASE CLOSTRIDIUM HISTOLYTICUM
     Dosage: UNK UNKNOWN, CYCLE TWO, INJECTION TWO
     Route: 026
     Dates: start: 2018
  3. XIAFLEX [Suspect]
     Active Substance: COLLAGENASE CLOSTRIDIUM HISTOLYTICUM
     Dosage: UNK UNKNOWN, CYCLE FOUR, INJECTION ONE
     Route: 026
     Dates: start: 2019
  4. XIAFLEX [Suspect]
     Active Substance: COLLAGENASE CLOSTRIDIUM HISTOLYTICUM
     Dosage: UNK UNKNOWN, CYCLE FIVE, INJECTION TWO
     Route: 026
     Dates: start: 2019
  5. XIAFLEX [Suspect]
     Active Substance: COLLAGENASE CLOSTRIDIUM HISTOLYTICUM
     Dosage: UNK UNKNOWN, CYCLE FIVE, INJECTION ONE
     Route: 026
     Dates: start: 2019
  6. XIAFLEX [Suspect]
     Active Substance: COLLAGENASE CLOSTRIDIUM HISTOLYTICUM
     Dosage: UNK UNKNOWN, CYCLE THREE, INJECTION ONE
     Route: 026
     Dates: start: 2019
  7. XIAFLEX [Suspect]
     Active Substance: COLLAGENASE CLOSTRIDIUM HISTOLYTICUM
     Dosage: UNK UNKNOWN, CYCLE THREE, INJECTION TWO
     Route: 026
     Dates: start: 2019
  8. XIAFLEX [Suspect]
     Active Substance: COLLAGENASE CLOSTRIDIUM HISTOLYTICUM
     Dosage: UNK UNKNOWN, CYCLE TWO, INJECTION TWO
     Route: 026
     Dates: start: 2019
  9. XIAFLEX [Suspect]
     Active Substance: COLLAGENASE CLOSTRIDIUM HISTOLYTICUM
     Dosage: UNK UNKNOWN, CYCLE FOUR, INJECTION TWO
     Route: 026
     Dates: start: 2019
  10. XIAFLEX [Suspect]
     Active Substance: COLLAGENASE CLOSTRIDIUM HISTOLYTICUM
     Indication: PEYRONIE^S DISEASE
     Dosage: UNK UNKNOWN, CYCLE ONE INJECTIONS ONE AND TWO
     Route: 026
     Dates: start: 2018
  11. TRIMIX (ALPROSTADIL\PAPAVERINE\PHENTOLAMINE) [Suspect]
     Active Substance: ALPROSTADIL\PAPAVERINE\PHENTOLAMINE
     Indication: PRODUCT USED FOR UNKNOWN INDICATION
     Dosage: UNK UNKNOWN, UNKNOWN
     Route: 065
  12. VITAMINS WITH MINERALS [Concomitant]
     Active Substance: MINERALS\VITAMINS
     Indication: PRODUCT USED FOR UNKNOWN INDICATION
     Dosage: UNK UNKNOWN, UNKNOWN
     Route: 065
  13. EXCEDRIN EXTRA STRENGTH [Concomitant]
     Active Substance: ACETAMINOPHEN\ASPIRIN\CAFFEINE
     Indication: PRODUCT USED FOR UNKNOWN INDICATION
     Dosage: UNK UNKNOWN, UNKNOWN
     Route: 065

REACTIONS (5)
  - Priapism [Recovered/Resolved]
  - Intentional product use issue [Unknown]
  - Penile swelling [Unknown]
  - Drug ineffective [Recovering/Resolving]
  - Penile pain [Unknown]

NARRATIVE: CASE EVENT DATE: 2018
